FAERS Safety Report 17486159 (Version 1)
Quarter: 2020Q1

REPORT INFORMATION
  Report Type: Spontaneous
  Country: US (occurrence: US)
  Receive Date: 20200303
  Receipt Date: 20200303
  Transmission Date: 20200409
  Serious: Yes (Hospitalization, Other)
  Sender: FDA-Public Use
  Company Number: US-CIPLA LTD.-2020US01435

PATIENT

DRUGS (2)
  1. EDOXABAN [Suspect]
     Active Substance: EDOXABAN TOSYLATE
     Indication: ANTICOAGULANT THERAPY
     Dosage: UNK
     Route: 065
  2. WARFARIN [Suspect]
     Active Substance: WARFARIN
     Indication: ANTICOAGULANT THERAPY
     Dosage: UNK
     Route: 065

REACTIONS (7)
  - Intestinal haematoma [Recovering/Resolving]
  - Melaena [Recovering/Resolving]
  - International normalised ratio abnormal [Recovering/Resolving]
  - Coagulopathy [Recovering/Resolving]
  - Thrombocytopenia [Unknown]
  - Product use issue [Unknown]
  - Haematemesis [Recovering/Resolving]
